FAERS Safety Report 8442364-8 (Version None)
Quarter: 2012Q2

REPORT INFORMATION
  Report Type: 
  Country: None (occurrence: None)
  Receive Date: 20120615
  Receipt Date: 20120210
  Transmission Date: 20120825
  Serious: No
  Sender: FDA-Public Use
  Company Number: US-NOVEN-12US004077

PATIENT
  Sex: Female

DRUGS (2)
  1. DAYTRANA [Suspect]
     Indication: AUTISM
     Dosage: 10 MG, UNK
     Route: 062
     Dates: start: 20120208, end: 20120210
  2. ZOLOFT [Concomitant]
     Indication: PRODUCT USED FOR UNKNOWN INDICATION
     Route: 048

REACTIONS (3)
  - NO ADVERSE EVENT [None]
  - OFF LABEL USE [None]
  - INCORRECT ROUTE OF DRUG ADMINISTRATION [None]
